FAERS Safety Report 9334918 (Version 2)
Quarter: 2013Q4

REPORT INFORMATION
  Report Type: Spontaneous
  Country: US (occurrence: US)
  Receive Date: 20130606
  Receipt Date: 20131008
  Transmission Date: 20140711
  Serious: No
  Sender: FDA-Public Use
  Company Number: US-AMGEN-USASP2013035051

PATIENT
  Age: 87 Year
  Sex: Female
  Weight: 82.9 kg

DRUGS (13)
  1. PROLIA [Suspect]
     Indication: OSTEOPOROSIS
     Dosage: 60 MG, Q6MO
     Route: 058
     Dates: start: 20130214
  2. LEVOTHYROXINE [Concomitant]
     Dosage: 125 MG, QD
     Route: 048
  3. FLUOCINONIDE [Concomitant]
     Dosage: 0.05 %, UNK
  4. COUMADIN                           /00014802/ [Concomitant]
     Dosage: 2 MG, UNK
     Route: 048
  5. OMEPRAZOLE [Concomitant]
     Dosage: 20 MG, UNK
     Route: 048
  6. LASIX                              /00032601/ [Concomitant]
     Dosage: 40 MG, UNK
  7. OSCAL                              /00514701/ [Concomitant]
     Dosage: 500/200
  8. SENNA                              /00142201/ [Concomitant]
     Dosage: 8.6 G, UNK
  9. TAMSULOSIN [Concomitant]
     Dosage: 0.4 MG, UNK
  10. TRAMADOL [Concomitant]
     Dosage: 325 UNK, UNK
  11. SOTALOL [Concomitant]
     Dosage: 80 NG, UNK
  12. ASA [Concomitant]
     Dosage: 81 MG, UNK
  13. COLCRYS [Concomitant]
     Dosage: 0.6 MG, UNK

REACTIONS (3)
  - Skin exfoliation [Unknown]
  - Pruritus [Unknown]
  - Eczema [Not Recovered/Not Resolved]
